FAERS Safety Report 21799548 (Version 2)
Quarter: 2023Q1

REPORT INFORMATION
  Report Type: Spontaneous
  Country: CZ (occurrence: CZ)
  Receive Date: 20221230
  Receipt Date: 20230106
  Transmission Date: 20230418
  Serious: Yes (Other)
  Sender: FDA-Public Use
  Company Number: None

PATIENT

DRUGS (3)
  1. VENTOLIN [Suspect]
     Active Substance: ALBUTEROL SULFATE
     Indication: Cough
     Dosage: 2 ML
     Route: 048
     Dates: start: 20221214, end: 20221215
  2. CEFZIL (CEFPROZIL MONOHYDRATE) [Concomitant]
     Indication: C-reactive protein increased
     Dosage: 2 ML
     Route: 048
     Dates: start: 20221208, end: 20221215
  3. CEFZIL (CEFPROZIL MONOHYDRATE) [Concomitant]
     Indication: Pyrexia

REACTIONS (1)
  - Urticaria [Unknown]

NARRATIVE: CASE EVENT DATE: 20221215
